FAERS Safety Report 7273468-3 (Version None)
Quarter: 2011Q1

REPORT INFORMATION
  Report Type: 
  Country: None (occurrence: None)
  Receive Date: 20110126
  Receipt Date: 20110119
  Transmission Date: 20110831
  Serious: Yes (Life-Threatening)
  Sender: FDA-Public Use
  Company Number: 2011MA000483

PATIENT
  Age: 23 Year
  Sex: Female

DRUGS (3)
  1. CON MEDS [Concomitant]
  2. PREV MEDS [Concomitant]
  3. CITALOPRAM HYDROBROMIDE [Suspect]
     Indication: DEPRESSION
     Dosage: 20 MG;PO
     Route: 048
     Dates: start: 20101221, end: 20110109

REACTIONS (2)
  - ALTERED VISUAL DEPTH PERCEPTION [None]
  - HALLUCINATION, VISUAL [None]
